FAERS Safety Report 10947549 (Version 1)
Quarter: 2015Q1

REPORT INFORMATION
  Report Type: Spontaneous
  Country: US (occurrence: None)
  Receive Date: 20150212
  Receipt Date: 20150212
  Transmission Date: 20150721
  Serious: No
  Sender: FDA-Public Use
  Company Number: TPA2011A07617

PATIENT
  Age: 81 Year
  Sex: Male
  Weight: 78.93 kg

DRUGS (5)
  1. LIPITOR [Suspect]
     Active Substance: ATORVASTATIN CALCIUM
  2. VENLAFAXINE [Suspect]
     Active Substance: VENLAFAXINE HYDROCHLORIDE
  3. METOPROLOL [Suspect]
     Active Substance: METOPROLOL
  4. PLAVIX [Suspect]
     Active Substance: CLOPIDOGREL BISULFATE
  5. ULORIC [Suspect]
     Active Substance: FEBUXOSTAT
     Indication: GOUT
     Route: 048
     Dates: start: 20110916

REACTIONS (1)
  - Gout [None]
